FAERS Safety Report 9904272 (Version 2)
Quarter: 2014Q2

REPORT INFORMATION
  Report Type: Spontaneous
  Country: PT (occurrence: PT)
  Receive Date: 20140218
  Receipt Date: 20140414
  Transmission Date: 20141212
  Serious: Yes (Hospitalization, Other)
  Sender: FDA-Public Use
  Company Number: PT-ROCHE-1347542

PATIENT
  Age: 54 Year
  Sex: Female

DRUGS (10)
  1. PEG-INTERFERON ALFA 2A [Suspect]
     Indication: HEPATITIS C
     Route: 065
  2. PEGINTERFERON ALFA-2B [Suspect]
     Indication: HEPATITIS C
     Route: 065
  3. RIBAVIRIN [Concomitant]
     Route: 065
  4. PREDNISOLONE [Concomitant]
  5. AZATHIOPRINE [Concomitant]
  6. TENOFOVIR [Concomitant]
     Indication: HIV INFECTION
  7. EMTRICITABINE [Concomitant]
     Indication: HIV INFECTION
  8. EFAVIRENZ [Concomitant]
     Indication: HIV INFECTION
  9. PAROXETINE [Concomitant]
     Indication: DEPRESSION
  10. ETHYL LOFLAZEPATE [Concomitant]
     Indication: DEPRESSION

REACTIONS (6)
  - Pneumonia [Unknown]
  - Autoimmune hepatitis [Unknown]
  - Hepatic cirrhosis [Unknown]
  - Liver function test abnormal [Unknown]
  - Hepatitis C RNA increased [Unknown]
  - Virologic failure [Unknown]
